FAERS Safety Report 9973360 (Version 12)
Quarter: 2016Q1

REPORT INFORMATION
  Report Type: Report from Study
  Country: JP (occurrence: JP)
  Receive Date: 20140306
  Receipt Date: 20160209
  Transmission Date: 20160526
  Serious: Yes (Life-Threatening, Hospitalization, Disabling, Other)
  Sender: FDA-Public Use
  Company Number: JP-PFIZER INC-2014058794

PATIENT
  Age: 81 Year
  Sex: Female
  Weight: 58 kg

DRUGS (25)
  1. DEPAS [Concomitant]
     Active Substance: ETIZOLAM
     Dosage: 0.5 MG, 2X/DAY
     Route: 048
     Dates: start: 20141016, end: 20141018
  2. AZUNOL [Concomitant]
     Active Substance: SODIUM GUALENATE
     Dosage: UNK, AS NEEDED
     Dates: start: 20140224, end: 20140304
  3. PANTOSIN [Concomitant]
     Active Substance: PANTETHINE
     Dosage: 200 MG, 1X/DAY
     Route: 048
     Dates: end: 20140925
  4. MOHRUS [Concomitant]
     Active Substance: KETOPROFEN
     Dosage: UNK, AS NEEDED
  5. DOGMATYL [Concomitant]
     Active Substance: SULPIRIDE
     Dosage: 50 MG, 2X/DAY
     Route: 048
  6. CRIZOTINIB [Suspect]
     Active Substance: CRIZOTINIB
     Dosage: 250 MG, 1X/DAY
     Route: 048
     Dates: start: 20140509, end: 20140926
  7. DEPAS [Concomitant]
     Active Substance: ETIZOLAM
     Dosage: 0.5 MG, 1X/DAY
     Route: 048
     Dates: end: 20141015
  8. SILECE [Concomitant]
     Active Substance: FLUNITRAZEPAM
     Dosage: 1 MG, AS NEEDED
     Route: 048
  9. VOALLA [Concomitant]
     Dosage: UNK, AS NEEDED
  10. CRIZOTINIB [Suspect]
     Active Substance: CRIZOTINIB
     Indication: NON-SMALL CELL LUNG CANCER
     Dosage: 500 MG, DAILY
     Route: 048
     Dates: start: 20140220, end: 20140226
  11. LAC B [Concomitant]
     Active Substance: BIFIDOBACTERIUM SPP.
     Dosage: 1 G, 1X/DAY
     Route: 048
     Dates: end: 20140925
  12. UREPEARL [Concomitant]
     Active Substance: UREA
     Dosage: UNK
     Route: 003
  13. AZULENE GLUTAMINE [Concomitant]
     Dosage: 0.67 G, 1X/DAY
     Route: 048
     Dates: end: 20140925
  14. ZOFRAN [Concomitant]
     Active Substance: ONDANSETRON HYDROCHLORIDE
     Dosage: 4 MG, 1X/DAY
     Route: 048
     Dates: end: 20140925
  15. AMLODIPINE [Concomitant]
     Active Substance: AMLODIPINE BESYLATE
     Dosage: 5 MG, 2X/DAY
     Route: 048
  16. RHYTHMY [Concomitant]
     Active Substance: RILMAZAFONE HYDROCHLORIDE
     Dosage: 1 MG, AS NEEDED
     Route: 048
     Dates: start: 20140219, end: 20140304
  17. ZANTAC [Concomitant]
     Active Substance: RANITIDINE HYDROCHLORIDE
     Dosage: 150 MG, 2X/DAY
     Route: 048
     Dates: end: 20140925
  18. DEPAS [Concomitant]
     Active Substance: ETIZOLAM
     Dosage: 0.5 MG, 3X/DAY
     Route: 048
     Dates: start: 20141019
  19. CODEIN [Concomitant]
     Active Substance: CODEINE
     Dosage: 1 G, AS NEEDED
     Route: 048
  20. ZANTAC [Concomitant]
     Active Substance: RANITIDINE HYDROCHLORIDE
     Dosage: 150 MG, 1X/DAY
     Route: 048
  21. DOGMATYL [Concomitant]
     Active Substance: SULPIRIDE
     Dosage: 50 MG, 2X/DAY
     Route: 048
     Dates: end: 20140925
  22. CRIZOTINIB [Suspect]
     Active Substance: CRIZOTINIB
     Dosage: 200 MG, 2X/DAY
     Route: 048
     Dates: start: 20140402, end: 20140411
  23. AMLODIPINE [Concomitant]
     Active Substance: AMLODIPINE BESYLATE
     Dosage: 5 MG, 2X/DAY
     Route: 048
     Dates: end: 20140918
  24. PRIMPERAN [Concomitant]
     Active Substance: METOCLOPRAMIDE HYDROCHLORIDE
     Dosage: 5 MG, 3X/DAY
     Route: 048
     Dates: end: 20140920
  25. BLOPRESS [Concomitant]
     Active Substance: CANDESARTAN CILEXETIL
     Dosage: 4 MG, 1X/DAY
     Route: 048
     Dates: end: 20140918

REACTIONS (10)
  - Renal impairment [Recovered/Resolved]
  - Renal impairment [Recovering/Resolving]
  - Hypoxia [Recovered/Resolved]
  - Renal impairment [Recovered/Resolved]
  - Dyspepsia [Recovered/Resolved]
  - Cardiac failure [Recovering/Resolving]
  - Respiratory failure [Recovered/Resolved]
  - Respiratory failure [Recovered/Resolved]
  - Dyspepsia [Recovered/Resolved]
  - Neutropenia [Recovered/Resolved]

NARRATIVE: CASE EVENT DATE: 20140220
